FAERS Safety Report 21103015 (Version 1)
Quarter: 2022Q3

REPORT INFORMATION
  Report Type: Spontaneous
  Country: PT (occurrence: PT)
  Receive Date: 20220720
  Receipt Date: 20220720
  Transmission Date: 20221027
  Serious: Yes (Disabling, Other)
  Sender: FDA-Public Use
  Company Number: PT-INFARMED-T202206-2939

PATIENT
  Age: 65 Year
  Sex: Female

DRUGS (3)
  1. CINACALCET HYDROCHLORIDE [Suspect]
     Active Substance: CINACALCET HYDROCHLORIDE
     Indication: Product used for unknown indication
     Dosage: 30 MILLIGRAM, ONCE A DAY (THE DOCTOR PRESCRIBED IT 3X A DAY, BUT THE PATIENT ONLY TOOK IT 1X A DAY)
     Route: 048
     Dates: start: 2019, end: 202201
  2. ASPIRIN [Concomitant]
     Active Substance: ASPIRIN
     Indication: Myocardial ischaemia
     Dosage: 100 MILLIGRAM, ONCE A DAY
     Route: 065
  3. LEVOTHYROXINE SODIUM [Concomitant]
     Active Substance: LEVOTHYROXINE SODIUM
     Indication: Product used for unknown indication
     Dosage: 75 MICROGRAM, ONCE A DAY (EVERY DAY)
     Route: 065

REACTIONS (4)
  - Pain of skin [Not Recovered/Not Resolved]
  - Blindness [Not Recovered/Not Resolved]
  - Strabismus [Not Recovered/Not Resolved]
  - Dysphonia [Not Recovered/Not Resolved]

NARRATIVE: CASE EVENT DATE: 20190101
